FAERS Safety Report 25042050 (Version 2)
Quarter: 2025Q2

REPORT INFORMATION
  Report Type: Spontaneous
  Country: US (occurrence: US)
  Receive Date: 20250305
  Receipt Date: 20250416
  Transmission Date: 20250716
  Serious: Yes (Hospitalization)
  Sender: MERCK SHARP AND DOHME
  Company Number: US-009507513-2253725

PATIENT
  Age: 68 Year
  Sex: Female
  Weight: 61.235 kg

DRUGS (11)
  1. SOTATERCEPT [Suspect]
     Active Substance: SOTATERCEPT
     Indication: Product used for unknown indication
     Dates: start: 202412
  2. SOTATERCEPT [Suspect]
     Active Substance: SOTATERCEPT
  3. SOTATERCEPT [Suspect]
     Active Substance: SOTATERCEPT
  4. SOTATERCEPT [Suspect]
     Active Substance: SOTATERCEPT
  5. TYVASO DPI [Suspect]
     Active Substance: TREPROSTINIL
     Indication: Pulmonary arterial hypertension
     Route: 055
  6. TYVASO DPI [Suspect]
     Active Substance: TREPROSTINIL
     Indication: Pulmonary arterial hypertension
     Route: 055
     Dates: start: 20240919
  7. VITAMIN D2 [Concomitant]
     Active Substance: ERGOCALCIFEROL
  8. METOPROLOL SUCCINATE [Concomitant]
     Active Substance: METOPROLOL SUCCINATE
  9. ASPIRIN [Concomitant]
     Active Substance: ASPIRIN
  10. ROSUVASTATIN CALCIUM [Concomitant]
     Active Substance: ROSUVASTATIN CALCIUM
  11. VITAMIN D3 [Concomitant]
     Active Substance: CHOLECALCIFEROL

REACTIONS (12)
  - Aortic rupture [Unknown]
  - Dizziness [Unknown]
  - Product use in unapproved indication [Unknown]
  - Nausea [Unknown]
  - Nervousness [Recovered/Resolved]
  - Norovirus infection [Unknown]
  - Thrombosis [Unknown]
  - Thirst [Unknown]
  - Product prescribing issue [Unknown]
  - Hyperhidrosis [Recovered/Resolved]
  - Influenza [Unknown]
  - Insurance issue [Unknown]

NARRATIVE: CASE EVENT DATE: 20241201
